FAERS Safety Report 19667245 (Version 1)
Quarter: 2021Q3

REPORT INFORMATION
  Report Type: Spontaneous
  Country: IN (occurrence: IN)
  Receive Date: 20210806
  Receipt Date: 20210806
  Transmission Date: 20211014
  Serious: Yes (Death, Other)
  Sender: FDA-Public Use
  Company Number: IN-PFIZER INC-202100981636

PATIENT
  Age: 76 Year
  Sex: Female

DRUGS (1)
  1. MEROPENEM. [Suspect]
     Active Substance: MEROPENEM
     Indication: SOFT TISSUE INFECTION
     Dosage: UNK

REACTIONS (2)
  - Acute kidney injury [Fatal]
  - Septic shock [Fatal]
